FAERS Safety Report 10163230 (Version 1)
Quarter: 2014Q2

REPORT INFORMATION
  Report Type: Spontaneous
  Country: FR (occurrence: FR)
  Receive Date: 20140509
  Receipt Date: 20140509
  Transmission Date: 20141212
  Serious: Yes (Hospitalization, Other)
  Sender: FDA-Public Use
  Company Number: FR-BRISTOL-MYERS SQUIBB COMPANY-20691481

PATIENT
  Age: 35 Year
  Sex: Female
  Weight: 59 kg

DRUGS (5)
  1. BARACLUDE [Suspect]
     Indication: HEPATITIS B
     Dates: start: 2009
  2. TACROLIMUS [Suspect]
     Indication: IMMUNOSUPPRESSION
     Dates: start: 20110516
  3. LEXOMIL [Concomitant]
     Indication: INSOMNIA
     Dosage: QUARTER OF TABLET
     Dates: start: 2013
  4. PARIET [Concomitant]
     Indication: ULCER
     Dates: start: 2011
  5. ASPEGIC [Concomitant]
     Indication: ANTICOAGULANT THERAPY
     Dates: start: 20110516

REACTIONS (7)
  - Hepatocellular carcinoma [Unknown]
  - Liver transplant [Unknown]
  - Cholestasis [Recovering/Resolving]
  - Cytomegalovirus infection [Recovering/Resolving]
  - Hepatocellular injury [Unknown]
  - Hyperthermia [Unknown]
  - Liver function test abnormal [Recovered/Resolved]
